FAERS Safety Report 20104986 (Version 1)
Quarter: 2021Q4

REPORT INFORMATION
  Report Type: Report from Study
  Country: IL (occurrence: IL)
  Receive Date: 20211124
  Receipt Date: 20211124
  Transmission Date: 20220303
  Serious: Yes (Hospitalization)
  Sender: FDA-Public Use
  Company Number: IL-ABBVIE-21K-082-4110629-00

PATIENT
  Sex: Male

DRUGS (7)
  1. CARBIDOPA\LEVODOPA [Suspect]
     Active Substance: CARBIDOPA\LEVODOPA
     Indication: Parkinson^s disease
     Dosage: CURRENT: MORNING 10.0 ML, CONTINUOUS DAY 1.5 ML/HOUR, EXTRA 1.0 ML THERAPY DURATION 16 H
     Route: 050
     Dates: start: 20210823, end: 2021
  2. CARBIDOPA\LEVODOPA [Suspect]
     Active Substance: CARBIDOPA\LEVODOPA
     Dosage: CURRENT: MORNING 10.0 ML, CONTINUOUS DAY 1.3 ML/HOUR, EXTRA 1.0 ML THERAPY DURATION 16 H
     Route: 050
     Dates: start: 2021, end: 2021
  3. CARBIDOPA\LEVODOPA [Suspect]
     Active Substance: CARBIDOPA\LEVODOPA
     Dosage: CURRENT: M:10.0 ML, CD:1.7 ML/HOUR, ED1.0 ML THERAPY DURATION 16 H
     Route: 050
     Dates: start: 20211103, end: 20211103
  4. CARBIDOPA\LEVODOPA [Suspect]
     Active Substance: CARBIDOPA\LEVODOPA
     Dosage: CURRENT: MORNING 10.0 ML, CONTINUOUS DAY 1.8 ML/HOUR, EXTRA 1.0 ML THERAPY DURATION 16 H
     Route: 050
     Dates: start: 20211103, end: 202111
  5. CARBIDOPA\LEVODOPA [Suspect]
     Active Substance: CARBIDOPA\LEVODOPA
     Dosage: MORNING 10.0 ML, CONTINUOUS DAY 1.5 ML/HOUR, EXTRA 1.0 ML
     Route: 050
     Dates: start: 202111
  6. ESTO [Concomitant]
     Indication: Depression
     Dosage: EVERY DAY AT 14:00 PM
  7. STALEVO [Concomitant]
     Active Substance: CARBIDOPA\ENTACAPONE\LEVODOPA
     Indication: Product used for unknown indication

REACTIONS (9)
  - Cognitive disorder [Unknown]
  - Condition aggravated [Unknown]
  - Confusional state [Unknown]
  - Depersonalisation/derealisation disorder [Unknown]
  - Infrequent bowel movements [Unknown]
  - Malaise [Not Recovered/Not Resolved]
  - On and off phenomenon [Unknown]
  - Dyskinesia [Unknown]
  - Stoma site reaction [Recovering/Resolving]

NARRATIVE: CASE EVENT DATE: 20210101
